FAERS Safety Report 8506290-8 (Version None)
Quarter: 2012Q3

REPORT INFORMATION
  Report Type: 
  Country: None (occurrence: None)
  Receive Date: 20120705
  Receipt Date: 20120705
  Transmission Date: 20120928
  Serious: Yes (Other)
  Sender: FDA-Public Use
  Company Number: None

PATIENT
  Age: 23 Year
  Sex: Female
  Weight: 78.9259 kg

DRUGS (1)
  1. ESCITALOPRAM [Suspect]
     Indication: ANXIETY DISORDER
     Dosage: 10MG DAILY PO
     Route: 048
     Dates: start: 20120422, end: 20120702

REACTIONS (12)
  - DECREASED APPETITE [None]
  - FEELING ABNORMAL [None]
  - ANXIETY [None]
  - NAUSEA [None]
  - APHAGIA [None]
  - BLOOD PRESSURE INCREASED [None]
  - DEPRESSION [None]
  - VISUAL IMPAIRMENT [None]
  - CONDITION AGGRAVATED [None]
  - PRODUCT SUBSTITUTION ISSUE [None]
  - FATIGUE [None]
  - IMPAIRED WORK ABILITY [None]
